FAERS Safety Report 4750542-4 (Version None)
Quarter: 2005Q3

REPORT INFORMATION
  Report Type: 
  Country: None (occurrence: None)
  Receive Date: 20050823
  Receipt Date: 20050311
  Transmission Date: 20060218
  Serious: Yes (Hospitalization)
  Sender: FDA-Public Use
  Company Number: US-MERCK-0503USA02620

PATIENT
  Age: 88 Year
  Sex: Female
  Weight: 73 kg

DRUGS (1)
  1. VIOXX [Suspect]
     Indication: OSTEOARTHRITIS
     Route: 048
     Dates: start: 20000912, end: 20011201

REACTIONS (7)
  - ADVERSE EVENT [None]
  - ANXIETY [None]
  - ARTHROPATHY [None]
  - CEREBROVASCULAR ACCIDENT [None]
  - GLAUCOMA [None]
  - SKIN CANCER [None]
  - TRANSIENT ISCHAEMIC ATTACK [None]
